FAERS Safety Report 11248676 (Version 1)
Quarter: 2015Q3

REPORT INFORMATION
  Report Type: Spontaneous
  Country: US (occurrence: US)
  Receive Date: 20150708
  Receipt Date: 20150708
  Transmission Date: 20151125
  Serious: No
  Sender: FDA-Public Use
  Company Number: US-ELI_LILLY_AND_COMPANY-US201003002760

PATIENT
  Age: 0 Year
  Sex: Male
  Weight: 72.56 kg

DRUGS (6)
  1. GUANFACINE HYDROCHLORIDE. [Concomitant]
     Active Substance: GUANFACINE HYDROCHLORIDE
     Indication: ATTENTION DEFICIT/HYPERACTIVITY DISORDER
     Dosage: 1 MG, DAILY (1/D)
     Route: 048
     Dates: start: 20100206, end: 20100213
  2. MULTIVITAMINS [Concomitant]
     Active Substance: VITAMINS
     Dosage: UNK, UNKNOWN
     Route: 065
  3. PROZAC [Suspect]
     Active Substance: FLUOXETINE HYDROCHLORIDE
     Dosage: UNK, UNKNOWN
     Route: 065
  4. GUANFACINE HYDROCHLORIDE. [Concomitant]
     Active Substance: GUANFACINE HYDROCHLORIDE
     Dosage: 2 MG, DAILY (1/D)
     Route: 048
     Dates: start: 20100214
  5. OMEGA-3 FATTY ACIDS [Concomitant]
     Active Substance: OMEGA-3 FATTY ACIDS
     Dosage: UNK, UNKNOWN
     Route: 065
  6. ECHINACEA PURPUREA [Concomitant]
     Active Substance: ECHINACEA PURPUREA
     Dosage: UNK, UNKNOWN
     Route: 065

REACTIONS (4)
  - Dizziness [Recovered/Resolved]
  - Somnolence [Not Recovered/Not Resolved]
  - Fatigue [Unknown]
  - Feeling abnormal [Unknown]

NARRATIVE: CASE EVENT DATE: 201002
